FAERS Safety Report 14666682 (Version 1)
Quarter: 2018Q1

REPORT INFORMATION
  Report Type: Spontaneous
  Country: FR (occurrence: FR)
  Receive Date: 20180322
  Receipt Date: 20180322
  Transmission Date: 20180509
  Serious: Yes (Other)
  Sender: FDA-Public Use
  Company Number: FR-MERCK KGAA-2044258

PATIENT
  Age: 60 Year
  Sex: Male

DRUGS (2)
  1. NOVOTHYROX [Suspect]
     Active Substance: LEVOTHYROXINE SODIUM
     Indication: POST PROCEDURAL HYPOTHYROIDISM
     Dates: start: 1996
  2. LEVOTHYROX 150 NF [Suspect]
     Active Substance: LEVOTHYROXINE SODIUM

REACTIONS (10)
  - Fatigue [None]
  - Blood thyroid stimulating hormone increased [None]
  - Loss of personal independence in daily activities [None]
  - Thyroxine free increased [None]
  - Sleep disorder [Recovered/Resolved]
  - Depression [Recovered/Resolved]
  - Anxiety [Recovered/Resolved]
  - Insomnia [None]
  - Gastrointestinal disorder [None]
  - Loss of libido [None]

NARRATIVE: CASE EVENT DATE: 20170125
